FAERS Safety Report 22635007 (Version 1)
Quarter: 2023Q2

REPORT INFORMATION
  Report Type: Spontaneous
  Country: US (occurrence: None)
  Receive Date: 20230622
  Receipt Date: 20230622
  Transmission Date: 20230722
  Serious: Yes (Disabling, Other)
  Sender: FDA-Public Use
  Company Number: None

PATIENT
  Age: 39 Year
  Sex: Female
  Weight: 45.45 kg

DRUGS (2)
  1. CLOMID [Suspect]
     Active Substance: CLOMIPHENE CITRATE
     Dosage: OTHER FREQUENCY : ONCE;?
     Route: 048
  2. ASENAPINE [Concomitant]
     Active Substance: ASENAPINE

REACTIONS (3)
  - Insomnia [None]
  - Acute psychosis [None]
  - Delusion [None]

NARRATIVE: CASE EVENT DATE: 20220501
